FAERS Safety Report 6031203-0 (Version None)
Quarter: 2008Q4

REPORT INFORMATION
  Report Type: 
  Country: None (occurrence: None)
  Receive Date: 20081224
  Receipt Date: 20080131
  Transmission Date: 20090506
  Serious: Yes (Hospitalization)
  Sender: FDA-Public Use
  Company Number: 20080021  /

PATIENT
  Age: 62 Year
  Sex: Female
  Weight: 47.6277 kg

DRUGS (4)
  1. VENOFER [Suspect]
     Indication: ANAEMIA
     Dosage: 500 MG IV OVER 4 HOURS INTRAVENOUS
     Route: 042
     Dates: start: 20080130, end: 20080130
  2. EPOETIN ALFA [Concomitant]
  3. TRAMADOL HCL [Concomitant]
  4. LISINOPRIL AND HYDROCHLOROTHIAZIDE [Concomitant]

REACTIONS (2)
  - HYPOTENSION [None]
  - VOMITING [None]
